FAERS Safety Report 12474693 (Version 1)
Quarter: 2016Q2

REPORT INFORMATION
  Report Type: Spontaneous
  Country: None (occurrence: None)
  Receive Date: 20160616
  Receipt Date: 20160616
  Transmission Date: 20160815
  Serious: Yes (Hospitalization)
  Sender: FDA-Public Use
  Company Number: None

PATIENT
  Age: 31 Year
  Sex: Male

DRUGS (14)
  1. MUPIROCIN. [Concomitant]
     Active Substance: MUPIROCIN
  2. SULFIDE [Concomitant]
  3. SERTRALINE [Concomitant]
     Active Substance: SERTRALINE HYDROCHLORIDE
  4. BACTRIM DS [Concomitant]
     Active Substance: SULFAMETHOXAZOLE\TRIMETHOPRIM
  5. HALOPERIDOL. [Concomitant]
     Active Substance: HALOPERIDOL
  6. LACTULOSE. [Concomitant]
     Active Substance: LACTULOSE
  7. CLOZAPINE. [Suspect]
     Active Substance: CLOZAPINE
     Indication: PSYCHOTIC DISORDER
     Route: 048
     Dates: start: 20160510, end: 20160524
  8. LISINOPRIL. [Concomitant]
     Active Substance: LISINOPRIL
  9. METOPROLOL. [Concomitant]
     Active Substance: METOPROLOL
  10. MIRTAZAPINE. [Concomitant]
     Active Substance: MIRTAZAPINE
  11. LORAZEPAM. [Concomitant]
     Active Substance: LORAZEPAM
  12. SELENIUM [Concomitant]
     Active Substance: SELENIUM
  13. OLANZAPINE. [Concomitant]
     Active Substance: OLANZAPINE
  14. DIPHENHYDRAMINE. [Concomitant]
     Active Substance: DIPHENHYDRAMINE

REACTIONS (7)
  - Pulmonary oedema [None]
  - Liver disorder [None]
  - Hypoxia [None]
  - Myocarditis [None]
  - Pyrexia [None]
  - Cardiac disorder [None]
  - Hypotension [None]

NARRATIVE: CASE EVENT DATE: 20160528
